FAERS Safety Report 6056546-6 (Version None)
Quarter: 2009Q1

REPORT INFORMATION
  Report Type: 
  Country: None (occurrence: None)
  Receive Date: 20090129
  Receipt Date: 20090123
  Transmission Date: 20090719
  Serious: Yes (Death, Other)
  Sender: FDA-Public Use
  Company Number: PHHO2007MX07955

PATIENT
  Age: 55 Year
  Sex: Female

DRUGS (1)
  1. DIOVAN HCT [Suspect]
     Indication: HYPERTENSION
     Dosage: 1/2 TABLET (160/12.5MG) PER DAY
     Route: 048
     Dates: start: 20060601, end: 20070301

REACTIONS (7)
  - CARDIO-RESPIRATORY ARREST [None]
  - CONCOMITANT DISEASE PROGRESSION [None]
  - DIABETIC NEUROPATHY [None]
  - GANGRENE [None]
  - HYPERGLYCAEMIA [None]
  - INFECTION [None]
  - RENAL FAILURE ACUTE [None]
